FAERS Safety Report 9338612 (Version 1)
Quarter: 2013Q2

REPORT INFORMATION
  Report Type: Report from Study
  Country: BR (occurrence: BR)
  Receive Date: 20130610
  Receipt Date: 20130610
  Transmission Date: 20140414
  Serious: Yes (Other)
  Sender: FDA-Public Use
  Company Number: PHHY2013BR058095

PATIENT
  Sex: Female

DRUGS (3)
  1. DIOVAN [Suspect]
     Indication: HYPERTENSION
     Dosage: 320 MG, UNK
  2. FRONTAL [Suspect]
     Dosage: UNK UKN, UNK
  3. CORTISONE [Concomitant]
     Dosage: UNK UKN, UNK

REACTIONS (2)
  - Intervertebral disc protrusion [Unknown]
  - Blood pressure increased [Unknown]
